FAERS Safety Report 4320612-3 (Version None)
Quarter: 2004Q1

REPORT INFORMATION
  Report Type: 
  Country: None (occurrence: None)
  Receive Date: 20040310
  Receipt Date: 20040227
  Transmission Date: 20041129
  Serious: No
  Sender: FDA-Public Use
  Company Number: CART-10104

PATIENT
  Age: 35 Year
  Sex: Female

DRUGS (1)
  1. CARTICEL [Suspect]
     Indication: BONE DISORDER
     Dosage: 1 NA ONCE IS
     Dates: start: 19990614, end: 19990614

REACTIONS (3)
  - FALL [None]
  - GRAFT COMPLICATION [None]
  - TRANSPLANT FAILURE [None]
